FAERS Safety Report 17361967 (Version 1)
Quarter: 2020Q1

REPORT INFORMATION
  Report Type: Spontaneous
  Country: IT (occurrence: IT)
  Receive Date: 20200203
  Receipt Date: 20200203
  Transmission Date: 20200409
  Serious: Yes (Hospitalization, Other)
  Sender: FDA-Public Use
  Company Number: PHHY2019IT111016

PATIENT
  Age: 60 Year
  Sex: Female
  Weight: 60 kg

DRUGS (21)
  1. VELCADE [Suspect]
     Active Substance: BORTEZOMIB
     Dosage: UNK
     Route: 058
     Dates: start: 20190513
  2. BACTRIM [Concomitant]
     Active Substance: SULFAMETHOXAZOLE\TRIMETHOPRIM
     Indication: ANTIBIOTIC PROPHYLAXIS
     Dosage: 1 DF, UNK
     Route: 048
     Dates: start: 20190408, end: 20190426
  3. NICETILE [Concomitant]
     Active Substance: LEVACECARNINE HYDROCHLORIDE
     Route: 048
     Dates: start: 2019
  4. AUGMENTIN [Concomitant]
     Active Substance: AMOXICILLIN\CLAVULANATE POTASSIUM
     Indication: PRODUCTIVE COUGH
     Dosage: 2 G, QD
     Route: 048
     Dates: start: 20190424
  5. SENNA [Concomitant]
     Active Substance: SENNA LEAF\SENNOSIDES\SENNOSIDES A AND B
     Route: 065
  6. DEXAMETHASONE. [Suspect]
     Active Substance: DEXAMETHASONE
     Dosage: UNK
     Route: 048
     Dates: start: 20190513
  7. VERSATIS [Concomitant]
     Active Substance: LIDOCAINE
     Dosage: 1 OT
     Route: 062
     Dates: start: 2019
  8. OKI [Concomitant]
     Active Substance: KETOPROFEN LYSINE
     Indication: SPINAL PAIN
     Dosage: AS NECESSARY, DOSAGE FORM: SACHET
     Route: 048
     Dates: start: 2019
  9. SENNA [Concomitant]
     Active Substance: SENNA LEAF\SENNOSIDES\SENNOSIDES A AND B
     Indication: CONSTIPATION PROPHYLAXIS
     Dosage: UNK (DOSAGE FORM: UNSPECIFIED)
     Route: 065
  10. DEXAMETHASONE. [Suspect]
     Active Substance: DEXAMETHASONE
     Indication: PLASMA CELL MYELOMA
     Dosage: 40 MG, INTERRUPTED ON 09-MAY-2019
     Route: 048
     Dates: start: 20190408, end: 20190419
  11. LENALIDOMIDE [Suspect]
     Active Substance: LENALIDOMIDE
     Indication: PLASMA CELL MYELOMA
     Dosage: 25 MG, UNK
     Route: 048
     Dates: start: 20190408, end: 20190423
  12. DARATUMUMAB [Suspect]
     Active Substance: DARATUMUMAB
     Dosage: UNK
     Route: 058
     Dates: start: 20190513, end: 2019
  13. VELCADE [Suspect]
     Active Substance: BORTEZOMIB
     Indication: PLASMA CELL MYELOMA
     Dosage: 2.11 MG, INTERRUPTED ON 09-MAY-2019
     Route: 058
     Dates: start: 20190408, end: 20190418
  14. VERSATIS [Concomitant]
     Active Substance: LIDOCAINE
     Indication: SPINAL PAIN
     Dosage: 1 DF, UNK
     Route: 062
  15. LENALIDOMIDE [Suspect]
     Active Substance: LENALIDOMIDE
     Dosage: UNK
     Route: 048
     Dates: start: 20190513
  16. BUPRENORPHINE. [Concomitant]
     Active Substance: BUPRENORPHINE
     Indication: SPINAL PAIN
     Dosage: 15 MG, QW
     Route: 062
     Dates: start: 2019
  17. CONTRAMAL [Concomitant]
     Active Substance: TRAMADOL HYDROCHLORIDE
     Indication: SPINAL PAIN
     Dosage: 10 GTT, UNK
     Route: 048
     Dates: start: 20190408
  18. DARATUMUMAB [Suspect]
     Active Substance: DARATUMUMAB
     Indication: PLASMA CELL MYELOMA
     Dosage: 1800 MG, UNK
     Route: 058
     Dates: start: 20190408, end: 20190415
  19. CLEXANE [Concomitant]
     Active Substance: ENOXAPARIN SODIUM
     Indication: ANTICOAGULANT THERAPY
     Dosage: 4000 IU, QD
     Route: 058
     Dates: start: 20190408
  20. ZELITREX [Concomitant]
     Active Substance: VALACYCLOVIR HYDROCHLORIDE
     Indication: ANTIVIRAL PROPHYLAXIS
     Dosage: 1000 MG, QD
     Route: 048
     Dates: start: 20190408, end: 20190426
  21. NICETILE [Concomitant]
     Active Substance: LEVACECARNINE HYDROCHLORIDE
     Indication: SPINAL PAIN
     Dosage: 3 OT, QD
     Route: 048

REACTIONS (2)
  - Pneumonia [Recovered/Resolved]
  - Febrile neutropenia [Not Recovered/Not Resolved]

NARRATIVE: CASE EVENT DATE: 20190427
